FAERS Safety Report 5328440-7 (Version None)
Quarter: 2007Q2

REPORT INFORMATION
  Report Type: 
  Country: None (occurrence: None)
  Receive Date: 20070516
  Receipt Date: 20070516
  Transmission Date: 20071010
  Serious: No
  Sender: FDA-Public Use
  Company Number: None

PATIENT
  Age: 33 Year
  Sex: Male
  Weight: 110.6777 kg

DRUGS (1)
  1. LEVEMIR [Suspect]
     Indication: DIABETES MELLITUS
     Dosage: 30 UNITS DAILY SQ
     Route: 058
     Dates: start: 20070413, end: 20070510

REACTIONS (2)
  - INJECTION SITE NODULE [None]
  - INJECTION SITE PAIN [None]
